FAERS Safety Report 20559779 (Version 1)
Quarter: 2022Q1

REPORT INFORMATION
  Report Type: Spontaneous
  Country: FR (occurrence: FR)
  Receive Date: 20220307
  Receipt Date: 20220307
  Transmission Date: 20220424
  Serious: Yes (Other)
  Sender: FDA-Public Use
  Company Number: None

PATIENT
  Age: 34 Year
  Sex: Male

DRUGS (24)
  1. PREGABALIN [Suspect]
     Active Substance: PREGABALIN
     Indication: Neuralgia
     Dosage: 300 MILLIGRAM, QD
     Route: 048
     Dates: start: 20220125, end: 20220128
  2. PREGABALIN [Suspect]
     Active Substance: PREGABALIN
     Dosage: 600 MILLIGRAM, QD
     Route: 048
     Dates: start: 20220201, end: 20220211
  3. PREGABALIN [Suspect]
     Active Substance: PREGABALIN
     Dosage: 300 MILLIGRAM, QD
     Route: 048
     Dates: start: 20220129, end: 20220201
  4. PREGABALIN [Suspect]
     Active Substance: PREGABALIN
     Dosage: 150 MILLIGRAM, QD
     Route: 048
     Dates: start: 20220123, end: 20220125
  5. PREGABALIN [Suspect]
     Active Substance: PREGABALIN
     Dosage: 300 MILLIGRAM, QD
     Route: 048
     Dates: start: 20220125, end: 20220128
  6. PREGABALIN [Suspect]
     Active Substance: PREGABALIN
     Dosage: 400 MILLIGRAM, QD
     Route: 048
     Dates: start: 20220216
  7. PREGABALIN [Suspect]
     Active Substance: PREGABALIN
     Dosage: 900 MILLIGRAM, QD
     Route: 048
     Dates: start: 20220211, end: 20220214
  8. PREGABALIN [Suspect]
     Active Substance: PREGABALIN
     Dosage: 600 MILLIGRAM, QD
     Route: 048
     Dates: start: 20220214, end: 20220216
  9. PREGABALIN [Suspect]
     Active Substance: PREGABALIN
     Dosage: 150 MILLIGRAM, QD
     Route: 048
     Dates: start: 20220128, end: 20220129
  10. KETOPROFEN [Suspect]
     Active Substance: KETOPROFEN
     Indication: Analgesic intervention supportive therapy
     Dosage: 200 MILLIGRAM, QD, 1 CAPSULE AT MIDNIGHT, 6 A.M., 12 P.M., 6 P.M
     Route: 048
     Dates: start: 20220123, end: 20220207
  11. ACUPAN [Suspect]
     Active Substance: NEFOPAM HYDROCHLORIDE
     Indication: Analgesic intervention supportive therapy
     Dosage: 120 MILLIGRAM, QD
     Route: 041
     Dates: start: 20220123, end: 20220127
  12. ACUPAN [Suspect]
     Active Substance: NEFOPAM HYDROCHLORIDE
     Dosage: 100 MILLIGRAM, QD
     Route: 041
     Dates: start: 20220127, end: 20220128
  13. ACUPAN [Suspect]
     Active Substance: NEFOPAM HYDROCHLORIDE
     Dosage: 80 MILLIGRAM, Q3D, ONE INFUSION ON 2 AND 5
     Route: 041
     Dates: start: 20220202, end: 20220205
  14. ACUPAN [Suspect]
     Active Substance: NEFOPAM HYDROCHLORIDE
     Dosage: 20 MILLIGRAM, PRN
     Route: 048
     Dates: start: 20220207
  15. AMITRIPTYLINE HYDROCHLORIDE [Suspect]
     Active Substance: AMITRIPTYLINE HYDROCHLORIDE
     Indication: Neuralgia
     Dosage: 15 MILLIGRAM, QD ( 15 DROPS)(START DATE: 02-FEB-2022)
     Route: 048
  16. AMITRIPTYLINE HYDROCHLORIDE [Suspect]
     Active Substance: AMITRIPTYLINE HYDROCHLORIDE
     Dosage: 25 MILLIGRAM, QD (START DATE: 07-FEB-2022)
     Route: 048
  17. AMITRIPTYLINE HYDROCHLORIDE [Suspect]
     Active Substance: AMITRIPTYLINE HYDROCHLORIDE
     Dosage: 5 MILLIGRAM, PRN 5 ADDITIONAL DROPS AT NIGHT IF INSUFFICIENT.(START DATE: 02-FEB-2022)
  18. AMITRIPTYLINE HYDROCHLORIDE [Suspect]
     Active Substance: AMITRIPTYLINE HYDROCHLORIDE
     Dosage: 5 MILLIGRAM, QD, (5 DROPS IN THE EVENING)(START DATE: 17-FEB-2022)
     Route: 048
  19. DOLIPRANE [Suspect]
     Active Substance: ACETAMINOPHEN
     Indication: Analgesic intervention supportive therapy
     Dosage: 1 GRAM, Q6H
     Route: 048
     Dates: start: 20220120, end: 20220207
  20. MORPHINE [Suspect]
     Active Substance: MORPHINE
     Indication: Analgesic intervention supportive therapy
     Dosage: 15 MILLIGRAM, QD (START DATE: 02-FEB-2022
     Route: 041
  21. SKENAN [Suspect]
     Active Substance: MORPHINE SULFATE
     Indication: Analgesic intervention supportive therapy
     Dosage: 20 MILLIGRAM, QD (START DATE: 07-FEB-2022)
     Route: 048
  22. KETAMINE [Concomitant]
     Active Substance: KETAMINE
     Indication: Sedative therapy
     Dosage: 10 MILLIGRAM, QH
     Route: 041
     Dates: start: 20220122, end: 20220125
  23. KETAMINE [Concomitant]
     Active Substance: KETAMINE
     Dosage: 15 MILLIGRAM, QH
     Route: 041
     Dates: start: 20220125, end: 20220127
  24. KETAMINE [Concomitant]
     Active Substance: KETAMINE
     Dosage: 5 MILLIGRAM, QH
     Route: 041
     Dates: start: 20220127, end: 20220127

REACTIONS (2)
  - Cholestasis [Recovering/Resolving]
  - Hepatic cytolysis [Recovering/Resolving]

NARRATIVE: CASE EVENT DATE: 20220131
